FAERS Safety Report 24379622 (Version 1)
Quarter: 2024Q3

REPORT INFORMATION
  Report Type: Spontaneous
  Country: CN (occurrence: CN)
  Receive Date: 20240930
  Receipt Date: 20240930
  Transmission Date: 20241017
  Serious: Yes (Hospitalization)
  Sender: ABBVIE
  Company Number: CN-ABBOTT-2024A-1388795

PATIENT
  Age: 50 Year
  Sex: Female
  Weight: 42.8 kg

DRUGS (5)
  1. FENOFIBRATE [Suspect]
     Active Substance: FENOFIBRATE
     Indication: Hyperlipidaemia
     Route: 048
     Dates: start: 20240907, end: 20240917
  2. LEVAMLODIPINE BESYLATE [Concomitant]
     Active Substance: LEVAMLODIPINE BESYLATE
     Indication: Hypotension
     Route: 048
     Dates: start: 20230414, end: 20240916
  3. VALSARTAN [Concomitant]
     Active Substance: VALSARTAN
     Indication: Hypotension
     Route: 048
     Dates: start: 20230414, end: 20240916
  4. COMPOUND DANSHEN [Concomitant]
     Indication: Cardiac disorder
     Dosage: COMPOUND DANSHEN DRIPPING PILLS
     Route: 048
     Dates: start: 20240414, end: 20240916
  5. MOSAPRIDE CITRATE [Concomitant]
     Active Substance: MOSAPRIDE CITRATE
     Indication: Chronic gastritis
     Route: 048
     Dates: start: 20240907, end: 20240910

REACTIONS (7)
  - Movement disorder [Unknown]
  - Musculoskeletal discomfort [Unknown]
  - Hepatic function abnormal [Unknown]
  - Pain in extremity [Unknown]
  - Myalgia [Unknown]
  - Back pain [Unknown]
  - Limb discomfort [Unknown]

NARRATIVE: CASE EVENT DATE: 20240916
